FAERS Safety Report 8578783-9 (Version None)
Quarter: 2012Q3

REPORT INFORMATION
  Report Type: 
  Country: None (occurrence: None)
  Receive Date: 20120808
  Receipt Date: 20120726
  Transmission Date: 20120928
  Serious: Yes (Other)
  Sender: FDA-Public Use
  Company Number: BR-FRI-1000037617

PATIENT
  Sex: Female
  Weight: 59 kg

DRUGS (13)
  1. ARIMIDEX [Concomitant]
     Indication: PROPHYLAXIS
     Dosage: 1 DF
     Route: 048
     Dates: start: 20090101
  2. MONALESS [Concomitant]
     Indication: BLOOD CHOLESTEROL
     Dosage: 1 DF
     Route: 048
     Dates: start: 20100101
  3. ROFLUMILAST [Suspect]
     Indication: BRONCHIECTASIS
     Dosage: 1 DF
     Route: 048
     Dates: start: 20120706
  4. VITERGAN MASTER [Concomitant]
     Indication: VITAMIN SUPPLEMENTATION
     Dosage: 1 DF
     Route: 048
     Dates: start: 20100101
  5. OXIMAX [Concomitant]
     Indication: ASTHMA
     Dosage: 1 DF
     Route: 055
     Dates: start: 20090101
  6. FLUTICASONE FUROATE [Concomitant]
     Indication: ASTHMA
     Dosage: 2 APPLICATIONS IN EACH NOSTRIL
     Route: 045
     Dates: start: 20120701
  7. ADDERA D3 [Concomitant]
     Indication: VITAMIN SUPPLEMENTATION
     Dosage: 6 GTT
     Route: 048
     Dates: start: 20100101
  8. PROCIMAX [Concomitant]
     Indication: DEPRESSION
     Dosage: 1 DF
     Route: 048
     Dates: start: 20120701
  9. GLUCOREUMIN [Concomitant]
     Indication: OSTEOARTHRITIS
     Dosage: 1 DF
     Route: 048
     Dates: start: 20100101
  10. CLOPIDOGREL [Concomitant]
     Indication: ANTICOAGULANT THERAPY
     Dosage: 1 DF
     Route: 048
     Dates: start: 20070101
  11. TEBONIN [Concomitant]
     Indication: LABYRINTHITIS
     Dosage: 1 DF
     Route: 048
     Dates: start: 20100101
  12. DIOVAN [Concomitant]
     Indication: HYPERTENSION
     Dosage: 1 DF
     Route: 048
     Dates: start: 20040101
  13. PANTOPRAZOLE [Concomitant]
     Indication: GASTRITIS
     Dosage: 1 DF
     Route: 048
     Dates: start: 20120705

REACTIONS (16)
  - HYPOTENSION [None]
  - SKIN IRRITATION [None]
  - NAUSEA [None]
  - FATIGUE [None]
  - TREMOR [None]
  - PARAESTHESIA [None]
  - PRURITUS [None]
  - HYPOAESTHESIA ORAL [None]
  - ASTHENIA [None]
  - DIZZINESS [None]
  - HYPERTENSION [None]
  - BACK PAIN [None]
  - MALAISE [None]
  - DEPRESSION [None]
  - MUSCULAR WEAKNESS [None]
  - GASTRITIS [None]
